FAERS Safety Report 8858418 (Version 1)
Quarter: 2012Q4

REPORT INFORMATION
  Report Type: 
  Country: CA (occurrence: CA)
  Receive Date: 20121024
  Receipt Date: 20121024
  Transmission Date: 20130627
  Serious: Yes (Death, Hospitalization, Other)
  Sender: FDA-Public Use
  Company Number: PHMT2007CA02045

PATIENT
  Sex: Female

DRUGS (3)
  1. SANDOSTATIN LAR [Suspect]
     Indication: NEUROENDOCRINE TUMOUR
     Dosage: 30 mg, QW3
     Route: 030
     Dates: start: 20060901, end: 20090401
  2. NORVASC [Concomitant]
     Indication: HYPERTENSION
  3. SUTENT [Concomitant]

REACTIONS (23)
  - Cardiac failure [Fatal]
  - Unresponsive to stimuli [Unknown]
  - Bile duct obstruction [Not Recovered/Not Resolved]
  - Jaundice [Not Recovered/Not Resolved]
  - Device related infection [Not Recovered/Not Resolved]
  - Abdominal infection [Not Recovered/Not Resolved]
  - Abdominal pain [Not Recovered/Not Resolved]
  - Pyrexia [Not Recovered/Not Resolved]
  - Pancreatic disorder [Not Recovered/Not Resolved]
  - Weight decreased [Not Recovered/Not Resolved]
  - Anaemia [Not Recovered/Not Resolved]
  - Pallor [Not Recovered/Not Resolved]
  - Malaise [Not Recovered/Not Resolved]
  - Asthenia [Unknown]
  - Neoplasm progression [Not Recovered/Not Resolved]
  - Malignant neoplasm progression [Not Recovered/Not Resolved]
  - Diabetes mellitus [Not Recovered/Not Resolved]
  - Blood glucose decreased [Not Recovered/Not Resolved]
  - Blood pressure increased [Unknown]
  - Leukoplakia oral [Unknown]
  - Oral pain [Unknown]
  - Fatigue [Unknown]
  - Injection site pain [Unknown]
